FAERS Safety Report 5874103-9 (Version None)
Quarter: 2008Q3

REPORT INFORMATION
  Report Type: 
  Country: None (occurrence: None)
  Receive Date: 20080908
  Receipt Date: 20080826
  Transmission Date: 20090109
  Serious: Yes (Death, Other)
  Sender: FDA-Public Use
  Company Number: JP-ROCHE-558579

PATIENT
  Sex: Male
  Weight: 61 kg

DRUGS (10)
  1. PEGASYS [Suspect]
     Indication: HEPATITIS C
     Route: 058
     Dates: start: 20080310, end: 20080324
  2. ALOSITOL [Suspect]
     Indication: HYPERURICAEMIA
     Route: 048
     Dates: start: 20080226, end: 20080407
  3. WARFARIN SODIUM [Suspect]
     Indication: THROMBOSIS PROPHYLAXIS
     Route: 048
     Dates: start: 20080310, end: 20080407
  4. LANSOPRAZOLE [Suspect]
     Indication: GASTRITIS
     Route: 048
     Dates: start: 20080312, end: 20080407
  5. BRUFEN [Suspect]
     Indication: PYREXIA
     Dosage: ROUTE: (ORAL FORMULATION NOT OTHER WISE SPECIFIED)
     Route: 048
     Dates: start: 20080316, end: 20080407
  6. URSO 250 [Concomitant]
     Dosage: ROUTE: (ORAL FORMULATION NOT OTHER WISE SPECIFIED)
     Route: 048
     Dates: start: 20070101, end: 20080407
  7. TANATRIL [Concomitant]
     Route: 048
     Dates: start: 20080211, end: 20080407
  8. DIOVAN [Concomitant]
     Route: 048
     Dates: start: 20080225, end: 20080407
  9. AMLODIPINE BESYLATE [Concomitant]
     Route: 048
     Dates: start: 20080303, end: 20080407
  10. NORVASC [Concomitant]
     Route: 048
     Dates: start: 20080204, end: 20080303

REACTIONS (4)
  - DISSEMINATED INTRAVASCULAR COAGULATION [None]
  - MULTI-ORGAN FAILURE [None]
  - PNEUMONIA ASPIRATION [None]
  - STEVENS-JOHNSON SYNDROME [None]
